FAERS Safety Report 8968360 (Version 1)
Quarter: 2012Q4

REPORT INFORMATION
  Report Type: 
  Country: US (occurrence: US)
  Receive Date: 20121218
  Receipt Date: 20121218
  Transmission Date: 20130627
  Serious: No
  Sender: FDA-Public Use
  Company Number: US-BRISTOL-MYERS SQUIBB COMPANY-16757270

PATIENT
  Age: 10 Year
  Sex: Male

DRUGS (1)
  1. ABILIFY TABS [Suspect]
     Indication: AFFECTIVE DISORDER
     Dosage: Dosage:2.5mg/day(cutting 5mg tabs in half)
     Dates: start: 20120702

REACTIONS (2)
  - Hypersensitivity [Unknown]
  - Wrong technique in drug usage process [Unknown]
